FAERS Safety Report 4463134-1 (Version None)
Quarter: 2004Q3

REPORT INFORMATION
  Report Type: 
  Country: None (occurrence: None)
  Receive Date: 20040928
  Receipt Date: 20040922
  Transmission Date: 20050211
  Serious: Yes (Hospitalization)
  Sender: FDA-Public Use
  Company Number: SELE20040003

PATIENT
  Age: 65 Year
  Sex: Male

DRUGS (4)
  1. SELEGILINE HYDROCHLORIDE [Suspect]
     Indication: PARKINSON'S DISEASE
     Dosage: 5 MG DAILY PO
     Route: 048
  2. LEVODOPA [Suspect]
     Indication: PARKINSON'S DISEASE
     Dosage: 600 MG DAILY PO
     Route: 048
  3. PERGOLIDE MESYLATE [Concomitant]
  4. AMANTADINE HCL [Concomitant]

REACTIONS (4)
  - AGGRESSION [None]
  - DELIRIUM [None]
  - HALLUCINATION [None]
  - WHEELCHAIR USER [None]
